FAERS Safety Report 9067247 (Version 1)
Quarter: 2013Q1

REPORT INFORMATION
  Report Type: Report from Study
  Country: US (occurrence: US)
  Receive Date: 20130201
  Receipt Date: 20130201
  Transmission Date: 20140127
  Serious: No
  Sender: FDA-Public Use
  Company Number: US-ABBOTT-12P-163-1027885-00

PATIENT
  Age: 67 Year
  Sex: Female

DRUGS (13)
  1. JANUMET [Concomitant]
     Indication: DIABETES MELLITUS
  2. EFFIENT [Concomitant]
     Indication: CARDIOVASCULAR DISORDER
     Dosage: DAILY
  3. ISOSRBIDE (IMDUR) [Concomitant]
     Indication: CARDIOVASCULAR DISORDER
     Dosage: DAILY
  4. MERCAPTOPURINE [Concomitant]
     Indication: CROHN^S DISEASE
     Dosage: 1/2 TABLET DAILY
  5. ASACOL [Concomitant]
     Indication: CROHN^S DISEASE
     Dosage: 12 DAILY
  6. PRIMIDONE [Concomitant]
     Indication: TREMOR
     Dosage: 8 DAILY
  7. IRON [Concomitant]
     Indication: MINERAL SUPPLEMENTATION
     Dosage: DAILY
  8. BABY ASPIRIN [Concomitant]
     Indication: CARDIOVASCULAR DISORDER
     Dosage: DAILY
  9. LIPITOR [Concomitant]
     Indication: BLOOD CHOLESTEROL INCREASED
     Dosage: DAILY
  10. HUMIRA [Suspect]
     Indication: CROHN^S DISEASE
     Dates: start: 20121001
  11. ESTRADIOL [Concomitant]
     Indication: HORMONE REPLACEMENT THERAPY
     Dosage: DAILY
  12. PROZAC [Concomitant]
     Indication: DEPRESSION
     Dosage: DAILY
  13. LOPRESSOR [Concomitant]
     Indication: CARDIAC DISORDER
     Dosage: DAILY

REACTIONS (4)
  - Urticaria [Not Recovered/Not Resolved]
  - Injection site pruritus [Not Recovered/Not Resolved]
  - Injection site erythema [Not Recovered/Not Resolved]
  - Injection site warmth [Not Recovered/Not Resolved]
